FAERS Safety Report 8901256 (Version 1)
Quarter: 2012Q4

REPORT INFORMATION
  Report Type: 
  Country: US (occurrence: US)
  Receive Date: 20121108
  Receipt Date: 20121108
  Transmission Date: 20130627
  Serious: No
  Sender: FDA-Public Use
  Company Number: US-AMGEN-USASP2012035081

PATIENT
  Age: 62 Year
  Sex: Female
  Weight: 58 kg

DRUGS (13)
  1. ENBREL [Suspect]
     Indication: RHEUMATOID ARTHRITIS
     Dosage: 50 mg, qwk
     Route: 058
  2. METHOTREXATE [Concomitant]
     Dosage: 2.5 mg, UNK
     Route: 048
  3. HUMIRA [Concomitant]
     Dosage: 40 mg, UNK
     Route: 058
  4. FOLIC ACID [Concomitant]
     Dosage: UNK
     Route: 048
  5. VITAMIN D /00107901/ [Concomitant]
     Dosage: 50000 IU, UNK
     Route: 048
  6. PAXIL [Concomitant]
     Dosage: 10 mg, UNK
     Route: 048
  7. CRESTOR [Concomitant]
     Dosage: 20 mg, UNK
     Route: 048
  8. BYSTOLIC [Concomitant]
     Dosage: 10 mg, UNK
     Route: 048
  9. ACYCLOVIR                          /00587301/ [Concomitant]
     Dosage: 200 mg, UNK
     Route: 048
  10. ZOVIRAX                            /00587301/ [Concomitant]
     Dosage: 400 mg, UNK
     Route: 048
  11. AMBIEN [Concomitant]
     Dosage: 5 mg, UNK
     Route: 048
  12. XANAX [Concomitant]
     Dosage: 0.25 mg, UNK
     Route: 048
  13. PREDNISONE [Concomitant]
     Dosage: 120 mg, UNK
     Route: 048

REACTIONS (1)
  - Drug ineffective [Unknown]
